FAERS Safety Report 17342995 (Version 1)
Quarter: 2020Q1

REPORT INFORMATION
  Report Type: Spontaneous
  Country: FI (occurrence: FI)
  Receive Date: 20200129
  Receipt Date: 20200129
  Transmission Date: 20200409
  Serious: Yes (Other)
  Sender: FDA-Public Use
  Company Number: FI-MYLANLABS-2020M1010186

PATIENT
  Age: 56 Year
  Sex: Female

DRUGS (5)
  1. KETOMEX                            /00321701/ [Concomitant]
     Indication: MIGRAINE
     Dosage: UNK
  2. CANDESARTAN. [Suspect]
     Active Substance: CANDESARTAN
     Indication: PRODUCT USED FOR UNKNOWN INDICATION
     Dosage: UNK
     Dates: end: 2019
  3. LITALGIN                           /00320201/ [Concomitant]
     Indication: MUSCULOSKELETAL PAIN
     Dosage: UNK
  4. LITALGIN                           /00320201/ [Concomitant]
     Indication: NECK PAIN
  5. LITALGIN                           /00320201/ [Concomitant]
     Indication: PAIN IN EXTREMITY

REACTIONS (1)
  - Vitreous detachment [Recovered/Resolved]

NARRATIVE: CASE EVENT DATE: 201901
